FAERS Safety Report 9883955 (Version 2)
Quarter: 2014Q1

REPORT INFORMATION
  Report Type: Spontaneous
  Country: US (occurrence: US)
  Receive Date: 20140210
  Receipt Date: 20140210
  Transmission Date: 20141002
  Serious: No
  Sender: FDA-Public Use
  Company Number: US-ALLERGAN-1317418US

PATIENT
  Sex: Female

DRUGS (2)
  1. BOTOX COSMETIC [Suspect]
     Indication: SKIN WRINKLING
     Dosage: UNK UNK, SINGLE
     Route: 030
     Dates: start: 20130926, end: 20130926
  2. BOTOX COSMETIC [Suspect]
     Indication: SKIN WRINKLING
     Dosage: UNK UNK, SINGLE
     Route: 030
     Dates: start: 20130905, end: 20130905

REACTIONS (5)
  - Acne [Recovered/Resolved]
  - Acne [Recovered/Resolved]
  - Injection site exfoliation [Recovered/Resolved]
  - Injection site dryness [Recovered/Resolved]
  - Therapeutic response decreased [Unknown]
